FAERS Safety Report 4752219-8 (Version None)
Quarter: 2005Q3

REPORT INFORMATION
  Report Type: 
  Country: None (occurrence: None)
  Receive Date: 20050825
  Receipt Date: 20050824
  Transmission Date: 20060218
  Serious: Yes (Death, Hospitalization)
  Sender: FDA-Public Use
  Company Number: GB-SANOFI-SYNTHELABO-F01200501663

PATIENT
  Age: 72 Year
  Sex: Male
  Weight: 78 kg

DRUGS (7)
  1. OXALIPLATIN [Suspect]
     Indication: COLORECTAL CANCER
     Dosage: 260 MG
     Route: 041
     Dates: start: 20050721, end: 20050721
  2. CAPECITABINE [Suspect]
     Indication: COLORECTAL CANCER
     Dosage: UNKNOWN DOSAGE
     Route: 048
     Dates: start: 20050726, end: 20050726
  3. ATENOLOL [Concomitant]
     Dosage: 25 MG
     Route: 048
     Dates: start: 19991214, end: 20050726
  4. ASPIRIN [Concomitant]
     Dosage: 75 MG
     Route: 048
     Dates: start: 19991214, end: 20050726
  5. METOCLOPRAMIDE [Concomitant]
     Dosage: 30 MG
     Route: 048
     Dates: start: 20050718, end: 20050726
  6. OMEPRAZOLE [Concomitant]
     Dosage: 20 MG
     Route: 048
     Dates: start: 20050718, end: 20050726
  7. LOPERAMIDE [Concomitant]
     Dosage: 8 MG
     Route: 048
     Dates: start: 20050718, end: 20050726

REACTIONS (2)
  - PULMONARY EMBOLISM [None]
  - SMALL INTESTINAL OBSTRUCTION [None]
